FAERS Safety Report 24402743 (Version 2)
Quarter: 2024Q4

REPORT INFORMATION
  Report Type: Spontaneous
  Country: IT (occurrence: IT)
  Receive Date: 20241007
  Receipt Date: 20241028
  Transmission Date: 20250115
  Serious: Yes (Other)
  Sender: AUROBINDO
  Company Number: IT-MINISAL02-1003584

PATIENT
  Age: 71 Year
  Sex: Female

DRUGS (5)
  1. OXALIPLATIN [Suspect]
     Active Substance: OXALIPLATIN
     Indication: Rectal cancer stage III
     Dosage: 200 MILLIGRAM (130 MG/SQM) EVERY 21 DAYS
     Route: 042
     Dates: start: 20240626, end: 20240918
  2. ASPIRIN [Concomitant]
     Active Substance: ASPIRIN
     Indication: Thrombosis prophylaxis
     Dosage: 100 MILLIGRAM, ONCE A DAY
     Route: 048
  3. Olmesartan e amlodipina eg [Concomitant]
     Indication: Hypertension
     Dosage: UNK UNK, ONCE A DAY (10/5 MG/DIE)
     Route: 048
  4. ATORVASTATIN [Concomitant]
     Active Substance: ATORVASTATIN
     Indication: Hypercholesterolaemia
     Dosage: 20 MILLIGRAM, ONCE A DAY
     Route: 048
  5. CAPECITABINE [Concomitant]
     Active Substance: CAPECITABINE
     Indication: Rectal cancer stage III
     Dosage: 1500 MILLIGRAM, TWO TIMES A DAY (FOR 14 DAYS FOLLOWED BY 7 DAYS OFF)
     Route: 048
     Dates: start: 20240626

REACTIONS (5)
  - Respiratory failure [Recovered/Resolved]
  - Sensitisation [Recovered/Resolved]
  - Erythema [Recovered/Resolved]
  - Hot flush [Recovered/Resolved]
  - Hyperhidrosis [Recovered/Resolved]

NARRATIVE: CASE EVENT DATE: 20240917
